FAERS Safety Report 11061961 (Version 1)
Quarter: 2015Q2

REPORT INFORMATION
  Report Type: Spontaneous
  Country: US (occurrence: US)
  Receive Date: 20150424
  Receipt Date: 20150424
  Transmission Date: 20150821
  Serious: No
  Sender: FDA-Public Use
  Company Number: US-ASTRAZENECA-2015SE35250

PATIENT
  Age: 78 Year
  Sex: Female
  Weight: 100 kg

DRUGS (16)
  1. CLONAZEPAM. [Concomitant]
     Active Substance: CLONAZEPAM
     Indication: DEPRESSION
  2. CELEBREX [Suspect]
     Active Substance: CELECOXIB
     Route: 065
  3. LYRICA [Suspect]
     Active Substance: PREGABALIN
     Indication: MUSCLE SPASMS
     Route: 065
     Dates: start: 201411
  4. METFORMIN [Concomitant]
     Active Substance: METFORMIN HYDROCHLORIDE
     Indication: DIABETES MELLITUS
  5. CYCLOBENZAPRINE [Concomitant]
     Active Substance: CYCLOBENZAPRINE
  6. GLIMEPIRIDE. [Concomitant]
     Active Substance: GLIMEPIRIDE
  7. OMEPRAZOLE. [Suspect]
     Active Substance: OMEPRAZOLE
     Route: 048
  8. THEOPHYLLINE [Concomitant]
     Active Substance: THEOPHYLLINE ANHYDROUS
     Indication: ASTHMA
  9. GABAPENTIN. [Concomitant]
     Active Substance: GABAPENTIN
     Indication: DIABETES MELLITUS
  10. DONEPEZIL HCL [Concomitant]
     Active Substance: DONEPEZIL HYDROCHLORIDE
     Indication: MEMORY IMPAIRMENT
     Dosage: GENERIC FOR ARICEPT 10MG FOR MEMORY ONCE DAILY AT NIGHT
  11. FUROSEMIDE. [Concomitant]
     Active Substance: FUROSEMIDE
     Indication: URINARY TRACT DISORDER
     Dosage: 40 MG SUPPOSED TO TAKE ONE EVERY DAY BUT
  12. SERTRALINE [Concomitant]
     Active Substance: SERTRALINE HYDROCHLORIDE
  13. JANUVIA [Concomitant]
     Active Substance: SITAGLIPTIN PHOSPHATE
     Indication: PARAESTHESIA
  14. ATORVASTATIN [Concomitant]
     Active Substance: ATORVASTATIN
  15. HYDROCODONE AP [Concomitant]
     Dosage: 7.5-325MG PRN
  16. LEVOTHYROXINE [Concomitant]
     Active Substance: LEVOTHYROXINE

REACTIONS (5)
  - Fall [Unknown]
  - Drug dose omission [Recovered/Resolved]
  - Osteoporosis [Not Recovered/Not Resolved]
  - Muscle disorder [Not Recovered/Not Resolved]
  - Intentional product misuse [Unknown]

NARRATIVE: CASE EVENT DATE: 2014
